FAERS Safety Report 7051898-2 (Version None)
Quarter: 2010Q4

REPORT INFORMATION
  Report Type: 
  Country: None (occurrence: None)
  Receive Date: 20101019
  Receipt Date: 20101008
  Transmission Date: 20110411
  Serious: Yes (Other)
  Sender: FDA-Public Use
  Company Number: FR-JNJFOC-20101000661

PATIENT
  Age: 48 Year
  Sex: Female

DRUGS (9)
  1. REMICADE [Suspect]
     Indication: ANKYLOSING SPONDYLITIS
     Route: 042
  2. REMICADE [Suspect]
     Dosage: RECEIVED 53 INFUSIONS
     Route: 042
  3. METHOTREXATE [Suspect]
     Indication: PRODUCT USED FOR UNKNOWN INDICATION
     Route: 048
  4. APRANAX [Suspect]
     Indication: PRODUCT USED FOR UNKNOWN INDICATION
  5. DEROXAT [Suspect]
     Indication: PRODUCT USED FOR UNKNOWN INDICATION
     Route: 048
  6. NEXIUM [Suspect]
     Indication: PRODUCT USED FOR UNKNOWN INDICATION
     Route: 048
  7. IXPRIM [Suspect]
     Indication: PRODUCT USED FOR UNKNOWN INDICATION
     Route: 048
  8. SPECIAFOLDINE [Concomitant]
  9. ALPRAZOLAM [Concomitant]

REACTIONS (5)
  - APHASIA [None]
  - DIZZINESS [None]
  - DRUG INEFFECTIVE [None]
  - HYPOAESTHESIA [None]
  - NEUROPATHY PERIPHERAL [None]
